FAERS Safety Report 12970574 (Version 2)
Quarter: 2017Q2

REPORT INFORMATION
  Report Type: Spontaneous
  Country: US (occurrence: US)
  Receive Date: 20161123
  Receipt Date: 20170511
  Transmission Date: 20170830
  Serious: Yes (Hospitalization)
  Sender: FDA-Public Use
  Company Number: US-BAUSCH-BL-2016-027856

PATIENT
  Sex: Male

DRUGS (2)
  1. ARESTIN [Suspect]
     Active Substance: MINOCYCLINE HYDROCHLORIDE
     Dosage: 12 UNIT
     Route: 065
     Dates: start: 20161018, end: 20161018
  2. ARESTIN [Suspect]
     Active Substance: MINOCYCLINE HYDROCHLORIDE
     Indication: PERIODONTAL DISEASE
     Dosage: 8 UNIT
     Route: 065
     Dates: start: 20160311, end: 20160311

REACTIONS (2)
  - Hospitalisation [Unknown]
  - Faeces discoloured [Unknown]
